FAERS Safety Report 11146586 (Version 1)
Quarter: 2015Q2

REPORT INFORMATION
  Report Type: Spontaneous
  Country: IN (occurrence: None)
  Receive Date: 20150526
  Receipt Date: 20150526
  Transmission Date: 20150821
  Serious: Yes (Hospitalization, Other)
  Sender: FDA-Public Use
  Company Number: IN-ZYDUS-008091

PATIENT
  Age: 31 Year
  Sex: Male

DRUGS (3)
  1. OLANZAPINE. [Concomitant]
     Active Substance: OLANZAPINE
  2. DIVALPROEX (DIVALPROEX) [Suspect]
     Active Substance: DIVALPROEX SODIUM
     Indication: MANIA
  3. TOPIRAMATE (TOPIRAMATE) [Suspect]
     Active Substance: TOPIRAMATE
     Indication: VASCULAR HEADACHE

REACTIONS (12)
  - Confusional state [None]
  - Speech disorder [None]
  - Delirium [None]
  - Vomiting [None]
  - Abasia [None]
  - Nausea [None]
  - Psychomotor hyperactivity [None]
  - Hyperammonaemia [None]
  - Feeling abnormal [None]
  - Headache [None]
  - Disorientation [None]
  - Decreased activity [None]
